FAERS Safety Report 17547019 (Version 1)
Quarter: 2020Q1

REPORT INFORMATION
  Report Type: Spontaneous
  Country: DK (occurrence: DK)
  Receive Date: 20200316
  Receipt Date: 20200316
  Transmission Date: 20200409
  Serious: Yes (Other)
  Sender: FDA-Public Use
  Company Number: DK-PFIZER INC-2020113379

PATIENT
  Age: 33 Year
  Sex: Female

DRUGS (4)
  1. SUMATRIPTAN ACCORD [Concomitant]
     Dosage: 50 MG, UNK
     Dates: start: 20171004
  2. ZESSLY [Suspect]
     Active Substance: INFLIXIMAB
     Indication: CROHN^S DISEASE
     Dosage: 300 MG, UNK
     Route: 065
     Dates: start: 20190814, end: 20190925
  3. ACICLOVIR 1A FARMA [Concomitant]
     Active Substance: ACYCLOVIR
     Dosage: 800 MG, UNK
     Dates: start: 20170316
  4. MAGNESIA MEDIC [Concomitant]
     Dosage: 500 MG, UNK
     Dates: start: 20180709

REACTIONS (5)
  - Drug-induced liver injury [Not Recovered/Not Resolved]
  - Blood lactate dehydrogenase increased [Not Recovered/Not Resolved]
  - Blood alkaline phosphatase increased [Not Recovered/Not Resolved]
  - Nausea [Not Recovered/Not Resolved]
  - Alanine aminotransferase increased [Not Recovered/Not Resolved]

NARRATIVE: CASE EVENT DATE: 201911
